FAERS Safety Report 4544070-9 (Version None)
Quarter: 2005Q1

REPORT INFORMATION
  Report Type: 
  Country: None (occurrence: None)
  Receive Date: 20050104
  Receipt Date: 20041229
  Transmission Date: 20050727
  Serious: Yes (Other)
  Sender: FDA-Public Use
  Company Number: US-MERCK-0412USA03303

PATIENT
  Sex: Male

DRUGS (2)
  1. VIOXX [Suspect]
     Indication: MUSCLE SPASMS
     Route: 048
     Dates: start: 20010101, end: 20040101
  2. VIOXX [Suspect]
     Indication: HYPOAESTHESIA
     Route: 048
     Dates: start: 20010101, end: 20040101

REACTIONS (2)
  - ADVERSE EVENT [None]
  - MYOCARDIAL INFARCTION [None]
